FAERS Safety Report 4474828-6 (Version None)
Quarter: 2004Q4

REPORT INFORMATION
  Report Type: 
  Country: None (occurrence: None)
  Receive Date: 20041012
  Receipt Date: 20040930
  Transmission Date: 20050328
  Serious: Yes (Life-Threatening)
  Sender: FDA-Public Use
  Company Number: 2004073486

PATIENT
  Age: 48 Year
  Sex: Male
  Weight: 70 kg

DRUGS (2)
  1. VIRACEPT [Suspect]
     Indication: HIV TEST POSITIVE
     Dosage: (2 IN 1 D), ORAL
     Route: 048
     Dates: start: 19980813
  2. ZIDOVUDINE W/LAMIVUDINE (LAMIVUDINE, ZIDOVUDINE) [Suspect]
     Indication: HIV TEST POSITIVE
     Dosage: (2 IN 1 D), ORAL
     Route: 048
     Dates: start: 19980813

REACTIONS (2)
  - EJECTION FRACTION ABNORMAL [None]
  - MYOCARDIAL INFARCTION [None]
